FAERS Safety Report 4943960-2 (Version None)
Quarter: 2006Q1

REPORT INFORMATION
  Report Type: 
  Country: None (occurrence: None)
  Receive Date: 20060313
  Receipt Date: 20060313
  Transmission Date: 20060701
  Serious: No
  Sender: FDA-Public Use
  Company Number: None

PATIENT
  Age: 74 Year
  Sex: Male
  Weight: 69.8539 kg

DRUGS (1)
  1. MAVIK [Suspect]
     Indication: HYPERTENSION
     Dosage: 1 DAY PO
     Route: 048
     Dates: start: 20021203, end: 20050714

REACTIONS (2)
  - RENAL DISORDER [None]
  - RENAL IMPAIRMENT [None]
